FAERS Safety Report 7184177-3 (Version None)
Quarter: 2010Q4

REPORT INFORMATION
  Report Type: 
  Country: None (occurrence: None)
  Receive Date: 20101123
  Receipt Date: 20101013
  Transmission Date: 20110411
  Serious: No
  Sender: FDA-Public Use
  Company Number: 014088

PATIENT
  Sex: Female

DRUGS (1)
  1. CIMZIA [Suspect]
     Dosage: (SUBCUTANEOUS)
     Route: 058
     Dates: start: 20090901, end: 20100101

REACTIONS (3)
  - OROPHARYNGEAL BLISTERING [None]
  - PYREXIA [None]
  - UPPER RESPIRATORY TRACT INFECTION [None]
